FAERS Safety Report 26162756 (Version 1)
Quarter: 2025Q4

REPORT INFORMATION
  Report Type: Spontaneous
  Country: US (occurrence: None)
  Receive Date: 20251215
  Receipt Date: 20251215
  Transmission Date: 20260118
  Serious: Yes (Other)
  Sender: FDA-CTU
  Company Number: None

PATIENT
  Age: 19 Year
  Sex: Male

DRUGS (1)
  1. ARIPIPRAZOLE [Suspect]
     Active Substance: ARIPIPRAZOLE

REACTIONS (5)
  - Product prescribing issue [None]
  - Paraphilia [None]
  - Product information content complaint [None]
  - Aggression [None]
  - Sexual abuse [None]

NARRATIVE: CASE EVENT DATE: 20240804
